FAERS Safety Report 9718425 (Version 1)
Quarter: 2013Q4

REPORT INFORMATION
  Report Type: Spontaneous
  Country: US (occurrence: US)
  Receive Date: 20131125
  Receipt Date: 20131125
  Transmission Date: 20140711
  Serious: No
  Sender: FDA-Public Use
  Company Number: US-VIVUS-2013V1000673

PATIENT
  Sex: Female

DRUGS (1)
  1. QSYMIA 15MG/92MG [Suspect]
     Indication: PRODUCT USED FOR UNKNOWN INDICATION
     Route: 048
     Dates: start: 20121011

REACTIONS (3)
  - Blepharospasm [Unknown]
  - Muscle twitching [Unknown]
  - Headache [Unknown]
